FAERS Safety Report 6150342-7 (Version None)
Quarter: 2009Q2

REPORT INFORMATION
  Report Type: 
  Country: None (occurrence: None)
  Receive Date: 20090409
  Receipt Date: 20081204
  Transmission Date: 20091009
  Serious: Yes (Other)
  Sender: FDA-Public Use
  Company Number: US-PFIZER INC-2008052665

PATIENT
  Sex: Female
  Weight: 52.6 kg

DRUGS (12)
  1. LYRICA [Suspect]
     Indication: FIBROMYALGIA
     Dosage: 100 MG, UNK
     Route: 048
     Dates: start: 20080505, end: 20080929
  2. LYRICA [Suspect]
     Indication: ARTHRALGIA
  3. ENALAPRIL [Concomitant]
  4. XANAX [Concomitant]
     Route: 048
  5. MORPHINE [Concomitant]
     Route: 048
  6. PERCOCET [Concomitant]
     Route: 048
  7. VITAMINS [Concomitant]
  8. ASCORBIC ACID [Concomitant]
  9. CHONDROITIN/GLUCOSAMINE [Concomitant]
  10. ALL OTHER THERAPEUTIC PRODUCTS [Concomitant]
  11. VALERIANA OFFICINALIS [Concomitant]
  12. HOPS [Concomitant]

REACTIONS (16)
  - ARTHRITIS [None]
  - CONVULSION [None]
  - DIPLOPIA [None]
  - DRUG INEFFECTIVE [None]
  - FATIGUE [None]
  - HYPOAESTHESIA [None]
  - MALAISE [None]
  - MUSCLE CONTRACTIONS INVOLUNTARY [None]
  - MYALGIA [None]
  - PAIN [None]
  - PARAESTHESIA [None]
  - SKIN DISCOLOURATION [None]
  - TINNITUS [None]
  - VISION BLURRED [None]
  - VISUAL IMPAIRMENT [None]
  - WEIGHT DECREASED [None]
